FAERS Safety Report 19633559 (Version 1)
Quarter: 2021Q3

REPORT INFORMATION
  Report Type: Report from Study
  Country: None (occurrence: US)
  Receive Date: 20210730
  Receipt Date: 20210730
  Transmission Date: 20211014
  Serious: Yes (Hospitalization, Other)
  Sender: FDA-Public Use
  Company Number: US-ABBVIE-21K-163-4011983-00

PATIENT
  Age: 86 Year
  Sex: Male

DRUGS (4)
  1. DUOPA [Suspect]
     Active Substance: CARBIDOPA\LEVODOPA
     Indication: PRODUCT USED FOR UNKNOWN INDICATION
     Route: 050
     Dates: start: 20160510
  2. PREDNISONE. [Suspect]
     Active Substance: PREDNISONE
     Indication: PRODUCT USED FOR UNKNOWN INDICATION
     Route: 065
  3. DUOPA [Suspect]
     Active Substance: CARBIDOPA\LEVODOPA
  4. FLUTICASONE. [Concomitant]
     Active Substance: FLUTICASONE
     Indication: PRODUCT USED FOR UNKNOWN INDICATION
     Dosage: 2 SPRAYS
     Route: 045

REACTIONS (13)
  - Anaesthetic complication [Unknown]
  - Choking [Unknown]
  - Device leakage [Unknown]
  - Sepsis [Unknown]
  - Decreased appetite [Unknown]
  - Dysphagia [Unknown]
  - Hypersomnia [Unknown]
  - Infection [Unknown]
  - Device occlusion [Recovered/Resolved]
  - Device dislocation [Not Recovered/Not Resolved]
  - Fluid intake reduced [Unknown]
  - Urinary tract infection [Unknown]
  - General physical health deterioration [Unknown]

NARRATIVE: CASE EVENT DATE: 2021
